FAERS Safety Report 23258603 (Version 2)
Quarter: 2023Q4

REPORT INFORMATION
  Report Type: Spontaneous
  Country: US (occurrence: US)
  Receive Date: 20231204
  Receipt Date: 20231212
  Transmission Date: 20240109
  Serious: Yes (Other)
  Sender: FDA-Public Use
  Company Number: US-MLMSERVICE-20231122-4673316-2

PATIENT
  Age: 38 Year
  Sex: Female

DRUGS (1)
  1. BUPRENORPHINE [Suspect]
     Active Substance: BUPRENORPHINE
     Indication: Drug use disorder
     Dosage: UNK UNK, MONTHLY
     Route: 058

REACTIONS (3)
  - Wrong technique in product usage process [Unknown]
  - Injection site scab [Recovered/Resolved]
  - Injection site necrosis [Recovered/Resolved]
